FAERS Safety Report 8800814 (Version 3)
Quarter: 2012Q4

REPORT INFORMATION
  Report Type: 
  Country: US (occurrence: US)
  Receive Date: 20120921
  Receipt Date: 20121101
  Transmission Date: 20130627
  Serious: Yes (Other)
  Sender: FDA-Public Use
  Company Number: US-PFIZER INC-2012230455

PATIENT
  Age: 78 Year
  Sex: Female
  Weight: 83.9 kg

DRUGS (11)
  1. LIPITOR [Suspect]
     Indication: HIGH CHOLESTEROL
     Dosage: 10 mg, 1x/day
     Route: 048
     Dates: start: 2000, end: 201201
  2. LIPITOR [Suspect]
     Dosage: 10 mg, 1x/day
     Dates: start: 2012
  3. ATORVASTATIN CALCIUM [Suspect]
     Indication: HIGH CHOLESTEROL
     Dosage: 10 mg, 1x/day
     Route: 048
     Dates: start: 201201, end: 201201
  4. ZANTAC [Concomitant]
     Dosage: 150 mg, 2x/day
  5. HYDROCHLOROTHIAZIDE TRIAMTERENE [Concomitant]
     Dosage: [triamterene 37.5 mg]/ [hydrochlorothiazide 25 mg], 1x/day
  6. PREVACID [Concomitant]
     Dosage: 15 mg, 1x/day
  7. LISINOPRIL [Concomitant]
     Indication: BLOOD PRESSURE HIGH
     Dosage: 5 mg, 1x/day
  8. PROPRANOLOL [Concomitant]
     Indication: BLOOD PRESSURE HIGH
     Dosage: 10 mg, 2x/day
  9. PROPRANOLOL [Concomitant]
     Indication: TREMOR LIMB
  10. ASACOL [Concomitant]
     Dosage: 400 mg, 2x/day
  11. ASPIRIN [Concomitant]
     Dosage: 81 mg, 1x/day

REACTIONS (16)
  - Fall [Unknown]
  - Facial bones fracture [Unknown]
  - Nerve injury [Unknown]
  - Fibroma [Unknown]
  - Laceration [Unknown]
  - Laceration [Unknown]
  - Hypersensitivity [Unknown]
  - Rash [Unknown]
  - Swelling [Unknown]
  - Erythema [Unknown]
  - Blister [Unknown]
  - Scratch [Unknown]
  - Blood triglycerides increased [Unknown]
  - Malaise [Unknown]
  - Back disorder [Unknown]
  - Nervous system disorder [Unknown]
